FAERS Safety Report 6043060-7 (Version None)
Quarter: 2009Q1

REPORT INFORMATION
  Report Type: 
  Country: None (occurrence: None)
  Receive Date: 20090119
  Receipt Date: 20090114
  Transmission Date: 20090719
  Serious: Yes (Death, Hospitalization, Other)
  Sender: FDA-Public Use
  Company Number: US-ELI_LILLY_AND_COMPANY-US200901002415

PATIENT
  Age: 60 Year
  Sex: Female

DRUGS (4)
  1. GEMZAR [Suspect]
     Indication: NON-SMALL CELL LUNG CANCER STAGE III
     Dosage: 125 MG/M2, WEEKLY (1/W)
  2. GEMZAR [Suspect]
     Dosage: 190 MG/M2, WEEKLY (1/W)
  3. GEMZAR [Suspect]
     Dosage: 1000 MG/M2, DAYS1,8,15Q28D
  4. CISPLATIN [Concomitant]
     Dosage: 60 MG/M2, DAY 1

REACTIONS (4)
  - DEATH [None]
  - MYOCARDIAL INFARCTION [None]
  - OESOPHAGITIS [None]
  - RESPIRATORY FAILURE [None]
